FAERS Safety Report 6292398-7 (Version None)
Quarter: 2009Q3

REPORT INFORMATION
  Report Type: 
  Country: None (occurrence: None)
  Receive Date: 20090731
  Receipt Date: 20090615
  Transmission Date: 20100115
  Serious: Yes (Death, Life-Threatening, Hospitalization, Disabling)
  Sender: FDA-Public Use
  Company Number: PHHO2008GB05582

PATIENT
  Sex: Female
  Weight: 117.1 kg

DRUGS (13)
  1. ZOLEDRONATE T29581+SOLINJ+BM [Suspect]
     Indication: BREAST CANCER
     Dosage: 4 MG
     Route: 042
     Dates: start: 20041022, end: 20090403
  2. CALCIUM [Concomitant]
     Indication: BREAST CANCER
     Route: 048
  3. VITAMIN D [Concomitant]
     Indication: BREAST CANCER
     Route: 048
  4. SERETIDE ^ALLEN + HANBURYS LTD^ [Concomitant]
     Dosage: 1 PUFF BID
  5. TIOTROPIUM [Concomitant]
     Dosage: 18 UG, QD
  6. TAMOXIFEN CITRATE [Concomitant]
     Indication: BREAST CANCER
     Dosage: 20 MG, QD
     Route: 048
     Dates: start: 20050501
  7. AMLODIPINE [Concomitant]
     Indication: BLOOD PRESSURE
     Dosage: 5 MG, QD
  8. AMLODIPINE [Concomitant]
     Dosage: 10 MG, QD
  9. LEVOTHYROXINE SODIUM [Concomitant]
     Dosage: 100 UG, QD
     Route: 048
  10. LEVOTHYROXINE SODIUM [Concomitant]
     Dosage: 150 UG, QD
     Route: 048
  11. TEMAZEPAM [Concomitant]
  12. ZOPICLONE [Concomitant]
     Dosage: 7.5 MG, QD
     Dates: start: 20090523
  13. QUININE SULPHATE [Concomitant]
     Dosage: 200 MG, QD
     Dates: start: 20090523

REACTIONS (13)
  - CARDIAC FAILURE [None]
  - CHRONIC OBSTRUCTIVE PULMONARY DISEASE [None]
  - DYSPNOEA [None]
  - ENDOTRACHEAL INTUBATION [None]
  - INFECTIVE EXACERBATION OF CHRONIC OBSTRUCTIVE AIRWAYS DISEASE [None]
  - LIVER FUNCTION TEST ABNORMAL [None]
  - MECHANICAL VENTILATION [None]
  - OEDEMA PERIPHERAL [None]
  - PERIPHERAL COLDNESS [None]
  - RENAL FUNCTION TEST ABNORMAL [None]
  - RESPIRATORY FAILURE [None]
  - SUDDEN DEATH [None]
  - TRACHEOSTOMY [None]
